FAERS Safety Report 17664495 (Version 1)
Quarter: 2020Q2

REPORT INFORMATION
  Report Type: Spontaneous
  Country: US (occurrence: US)
  Receive Date: 20200414
  Receipt Date: 20200414
  Transmission Date: 20200713
  Serious: No
  Sender: FDA-Public Use
  Company Number: US-MYLANLABS-2020M1034691

PATIENT
  Sex: Female

DRUGS (1)
  1. ESTRADIOL. [Suspect]
     Active Substance: ESTRADIOL
     Indication: OVARIAN CANCER
     Dosage: 1 DOSAGE FORM (CHANGE TWICE A WEEK)
     Route: 062

REACTIONS (2)
  - Application site erythema [Recovered/Resolved]
  - Product adhesion issue [Unknown]
